FAERS Safety Report 10176371 (Version 1)
Quarter: 2014Q2

REPORT INFORMATION
  Report Type: Spontaneous
  Country: US (occurrence: None)
  Receive Date: 20140515
  Receipt Date: 20140515
  Transmission Date: 20141212
  Serious: Yes (Other)
  Sender: FDA-Public Use
  Company Number: None

PATIENT
  Age: 77 Year
  Sex: Female
  Weight: 90.72 kg

DRUGS (3)
  1. AMLODIPINE/BENAZEPRIL [Suspect]
     Indication: HYPERTENSION
     Route: 048
     Dates: start: 20140128, end: 20140307
  2. AMLODIPINE/BENZAPRIL [Suspect]
  3. TYLENOL [Concomitant]

REACTIONS (6)
  - Euphoric mood [None]
  - Diarrhoea [None]
  - Feeling abnormal [None]
  - Skin discolouration [None]
  - Cough [None]
  - Eye pain [None]
